FAERS Safety Report 8268776-3 (Version None)
Quarter: 2012Q2

REPORT INFORMATION
  Report Type: 
  Country: None (occurrence: None)
  Receive Date: 20120409
  Receipt Date: 20120409
  Transmission Date: 20120825
  Serious: Yes (Life-Threatening, Hospitalization, Disabling)
  Sender: FDA-Public Use
  Company Number: None

PATIENT
  Age: 59 Year
  Sex: Male
  Weight: 125 kg

DRUGS (8)
  1. TIKOSYN [Suspect]
     Indication: ATRIAL FIBRILLATION
     Dates: start: 20120331, end: 20120331
  2. LOPRESSOR [Concomitant]
     Route: 048
  3. PRADAXA [Concomitant]
     Route: 048
  4. LASIX [Concomitant]
     Route: 042
  5. TIKOSYN [Concomitant]
     Dates: start: 20120331, end: 20120402
  6. DILTIAZEM HCL [Concomitant]
     Route: 042
  7. FISH OIL [Concomitant]
     Route: 048
  8. NITROGLYCERIN [Concomitant]
     Route: 061

REACTIONS (8)
  - CARDIAC ARREST [None]
  - PULSE ABSENT [None]
  - LOSS OF CONSCIOUSNESS [None]
  - CYANOSIS [None]
  - TORSADE DE POINTES [None]
  - BLOOD PRESSURE DECREASED [None]
  - UNRESPONSIVE TO STIMULI [None]
  - ATRIAL FIBRILLATION [None]
